FAERS Safety Report 9778765 (Version 2)
Quarter: 2014Q1

REPORT INFORMATION
  Report Type: Spontaneous
  Country: JP (occurrence: JP)
  Receive Date: 20131223
  Receipt Date: 20140122
  Transmission Date: 20141002
  Serious: Yes (Other)
  Sender: FDA-Public Use
  Company Number: JP-MYLANLABS-2013S1027991

PATIENT
  Age: 32 Year
  Sex: Male

DRUGS (2)
  1. CARBOPLATIN [Suspect]
     Indication: THYMOMA
     Route: 041
     Dates: start: 20090512, end: 20090512
  2. PACLITAXEL [Suspect]
     Indication: THYMOMA
     Route: 041
     Dates: start: 20090512, end: 20090512

REACTIONS (1)
  - Shock [Recovered/Resolved]
